FAERS Safety Report 17130675 (Version 1)
Quarter: 2019Q4

REPORT INFORMATION
  Report Type: Spontaneous
  Country: FR (occurrence: FR)
  Receive Date: 20191209
  Receipt Date: 20191209
  Transmission Date: 20200122
  Serious: Yes (Other)
  Sender: FDA-Public Use
  Company Number: NVSC2019FR058944

PATIENT
  Age: 43 Year
  Sex: Female

DRUGS (1)
  1. CALCIUM [Suspect]
     Active Substance: CALCIUM
     Indication: HYPOPARATHYROIDISM SECONDARY
     Dosage: UNK
     Route: 065

REACTIONS (4)
  - Calcinosis [Unknown]
  - Product use in unapproved indication [Unknown]
  - Hypercalcaemia [Unknown]
  - Renal failure [Unknown]
